FAERS Safety Report 4503222-4 (Version None)
Quarter: 2004Q4

REPORT INFORMATION
  Report Type: 
  Country: None (occurrence: None)
  Receive Date: 20041117
  Receipt Date: 20041109
  Transmission Date: 20050328
  Serious: Yes (Disabling)
  Sender: FDA-Public Use
  Company Number: US-MERCK-0411USA01753

PATIENT
  Age: 59 Year
  Sex: Female

DRUGS (1)
  1. VIOXX [Suspect]
     Indication: ARTHRITIS
     Route: 048

REACTIONS (7)
  - ABDOMINAL DISCOMFORT [None]
  - ALOPECIA [None]
  - BACK DISORDER [None]
  - DRUG INEFFECTIVE [None]
  - ORAL INFECTION [None]
  - TOOTH LOSS [None]
  - VOMITING [None]
